FAERS Safety Report 16270286 (Version 1)
Quarter: 2019Q2

REPORT INFORMATION
  Report Type: Spontaneous
  Country: US (occurrence: US)
  Receive Date: 20190329
  Receipt Date: 20190329
  Transmission Date: 20190711
  Serious: No
  Sender: FDA-Public Use
  Company Number: None

PATIENT
  Sex: Female

DRUGS (1)
  1. OLUMIANT [Suspect]
     Active Substance: BARICITINIB
     Route: 048
     Dates: start: 20190314

REACTIONS (4)
  - Dizziness [None]
  - Diarrhoea [None]
  - Asthenia [None]
  - Hyperhidrosis [None]
